FAERS Safety Report 15148558 (Version 1)
Quarter: 2018Q3

REPORT INFORMATION
  Report Type: Spontaneous
  Country: US (occurrence: US)
  Receive Date: 20180716
  Receipt Date: 20180716
  Transmission Date: 20181010
  Serious: No
  Sender: FDA-Public Use
  Company Number: US-ASTRAZENECA-2018SE80079

PATIENT
  Weight: 49.4 kg

DRUGS (12)
  1. DULOXETINE. [Concomitant]
     Active Substance: DULOXETINE
     Indication: ANTIDEPRESSANT THERAPY
  2. LEVOTHYROXINE. [Concomitant]
     Active Substance: LEVOTHYROXINE
     Indication: THYROID DISORDER
  3. BREO ELLIPTA [Concomitant]
     Active Substance: FLUTICASONE FUROATE\VILANTEROL TRIFENATATE
     Indication: CHRONIC OBSTRUCTIVE PULMONARY DISEASE
     Dosage: ONE INHALATION IN THE MORNING
  4. CLARITIN OTC [Concomitant]
     Indication: SEASONAL ALLERGY
     Dosage: DAILY
  5. ONDANSETRON [Concomitant]
     Active Substance: ONDANSETRON
     Indication: NAUSEA
  6. TYLENOL ARTHRITIS PAIN [Concomitant]
     Active Substance: ACETAMINOPHEN
     Indication: PAIN
     Dosage: AS NEED
  7. REQUIP [Concomitant]
     Active Substance: ROPINIROLE HYDROCHLORIDE
     Indication: RESTLESS LEGS SYNDROME
     Dosage: TWO TIMES A DAY
  8. IMFINZI [Suspect]
     Active Substance: DURVALUMAB
     Indication: NON-SMALL CELL LUNG CANCER STAGE III
     Route: 042
  9. FOSINOPRIL [Concomitant]
     Active Substance: FOSINOPRIL
     Indication: BLOOD PRESSURE ABNORMAL
  10. CLONAZEPAM. [Concomitant]
     Active Substance: CLONAZEPAM
     Indication: FEELING OF RELAXATION
  11. HYDROCO ACETA [Concomitant]
     Indication: PAIN
     Dosage: 5.325MG AS NEEDED
  12. CLARITIN OTC [Concomitant]
     Indication: SEASONAL ALLERGY
     Dosage: DAILY

REACTIONS (22)
  - Weight decreased [Unknown]
  - Cough [Unknown]
  - Pain in jaw [Unknown]
  - Dysphonia [Unknown]
  - Urinary tract infection [Recovered/Resolved]
  - Back pain [Unknown]
  - Affective disorder [Unknown]
  - Visual impairment [Unknown]
  - Chills [Unknown]
  - Eye pain [Unknown]
  - Nausea [Unknown]
  - Ear pain [Unknown]
  - Headache [Unknown]
  - Abdominal tenderness [Unknown]
  - Neck pain [Unknown]
  - Tinnitus [Unknown]
  - Dizziness [Recovering/Resolving]
  - Hypoacusis [Unknown]
  - Arthralgia [Unknown]
  - Toothache [Unknown]
  - Fatigue [Unknown]
  - Blister [Unknown]
